FAERS Safety Report 5485922-5 (Version None)
Quarter: 2007Q4

REPORT INFORMATION
  Report Type: 
  Country: None (occurrence: None)
  Receive Date: 20071015
  Receipt Date: 20071002
  Transmission Date: 20080405
  Serious: Yes (Other)
  Sender: FDA-Public Use
  Company Number: US-SHR-US-2007-022489

PATIENT
  Age: 43 Year
  Sex: Female
  Weight: 50.794 kg

DRUGS (11)
  1. BETASERON [Suspect]
     Indication: RELAPSING-REMITTING MULTIPLE SCLEROSIS
     Dosage: 8 MIU, EVERY 2D
     Route: 058
     Dates: start: 20060502
  2. BETASERON [Suspect]
     Dosage: 8 MIU, EVERY 3D
     Route: 058
     Dates: end: 20060819
  3. GABAPENTIN [Concomitant]
  4. CLONAZEPAM [Concomitant]
  5. VICODIN [Concomitant]
  6. KEPPRA [Concomitant]
  7. IBUPROFEN [Concomitant]
  8. XANAX [Concomitant]
  9. LORTAB [Concomitant]
  10. ESTRADIOL [Concomitant]
     Route: 062
  11. ^PROVISUAL^ [Concomitant]

REACTIONS (25)
  - ABASIA [None]
  - ABDOMINAL PAIN [None]
  - COGNITIVE DISORDER [None]
  - CONTUSION [None]
  - DEPRESSION [None]
  - DIARRHOEA [None]
  - DIZZINESS [None]
  - ERYTHEMA [None]
  - FATIGUE [None]
  - HEADACHE [None]
  - INFLUENZA LIKE ILLNESS [None]
  - INTERVERTEBRAL DISC PROTRUSION [None]
  - LIP SWELLING [None]
  - LOSS OF CONSCIOUSNESS [None]
  - MOTOR DYSFUNCTION [None]
  - NAUSEA [None]
  - OEDEMA PERIPHERAL [None]
  - PAIN OF SKIN [None]
  - PALPITATIONS [None]
  - SENSATION OF HEAVINESS [None]
  - TINNITUS [None]
  - TREMOR [None]
  - VERTIGO [None]
  - VISION BLURRED [None]
  - VOMITING [None]
